FAERS Safety Report 25498138 (Version 1)
Quarter: 2025Q3

REPORT INFORMATION
  Report Type: Other
  Country: US (occurrence: US)
  Receive Date: 20250701
  Receipt Date: 20250701
  Transmission Date: 20251020
  Serious: Yes (unspecified)
  Sender: TAMARANG PHARMACEUTICALS
  Company Number: US-Tamarang, S.A.-2179674

PATIENT
  Age: 16 Year
  Sex: Male
  Weight: 52.1 kg

DRUGS (2)
  1. ROCURONIUM BROMIDE [Suspect]
     Active Substance: ROCURONIUM BROMIDE
     Indication: Endotracheal intubation
  2. SEVOFLURANE [Concomitant]
     Active Substance: SEVOFLURANE

REACTIONS (3)
  - Accidental exposure to product [Recovered/Resolved]
  - Livedo reticularis [Recovered/Resolved]
  - Intercepted product administration error [Recovered/Resolved]
